FAERS Safety Report 10063781 (Version 1)
Quarter: 2014Q2

REPORT INFORMATION
  Report Type: Spontaneous
  Country: IN (occurrence: IN)
  Receive Date: 20140408
  Receipt Date: 20140408
  Transmission Date: 20141212
  Serious: Yes (Death)
  Sender: FDA-Public Use
  Company Number: IN-009507513-1404IND002130

PATIENT
  Age: 53 Year
  Sex: Male
  Weight: 46 kg

DRUGS (1)
  1. JANUVIA [Suspect]
     Indication: DIABETES MELLITUS
     Dosage: 1 DF, UNK
     Route: 048

REACTIONS (6)
  - Death [Fatal]
  - Hypoglycaemia [Recovered/Resolved]
  - Haematemesis [Unknown]
  - Haematochezia [Unknown]
  - Vomiting [Unknown]
  - Liver disorder [Unknown]
